FAERS Safety Report 16684866 (Version 1)
Quarter: 2019Q3

REPORT INFORMATION
  Report Type: Spontaneous
  Country: EG (occurrence: EG)
  Receive Date: 20190808
  Receipt Date: 20190808
  Transmission Date: 20191004
  Serious: Yes (Life-Threatening, Hospitalization, Other)
  Sender: FDA-Public Use
  Company Number: EG-JNJFOC-20190800952

PATIENT
  Age: 59 Year
  Sex: Female

DRUGS (1)
  1. CAELYX [Suspect]
     Active Substance: DOXORUBICIN HYDROCHLORIDE
     Indication: BREAST CANCER
     Route: 065

REACTIONS (4)
  - Left ventricular dysfunction [Recovered/Resolved]
  - Ischaemic stroke [Recovered/Resolved]
  - Thrombosis [Recovered/Resolved]
  - Cardiac failure [Recovered/Resolved]
